FAERS Safety Report 18996970 (Version 1)
Quarter: 2021Q1

REPORT INFORMATION
  Report Type: Spontaneous
  Country: US (occurrence: US)
  Receive Date: 20210310
  Receipt Date: 20210310
  Transmission Date: 20210420
  Serious: Yes (Death, Hospitalization)
  Sender: FDA-Public Use
  Company Number: None

PATIENT
  Age: 74 Year
  Sex: Male

DRUGS (9)
  1. MIRTAZAPINE. [Concomitant]
     Active Substance: MIRTAZAPINE
  2. OMEPRAZOLE. [Concomitant]
     Active Substance: OMEPRAZOLE
  3. VITAMIN D3 [Concomitant]
     Active Substance: CHOLECALCIFEROL
  4. ATORVASTATI [Concomitant]
  5. CERDELGA [Suspect]
     Active Substance: ELIGLUSTAT
     Indication: GAUCHER^S DISEASE
     Route: 048
     Dates: start: 20201002, end: 202102
  6. TRANSDERM SCOP [Concomitant]
     Active Substance: SCOPOLAMINE
  7. TIMOLOL OPHT DROP [Concomitant]
  8. ALLOPURINOL. [Concomitant]
     Active Substance: ALLOPURINOL
  9. CERTAVITE?ANTIOXID [Concomitant]

REACTIONS (8)
  - Hypercapnia [None]
  - Acute hepatic failure [None]
  - Hepatocellular carcinoma [None]
  - Liver injury [None]
  - Respiratory failure [None]
  - Urinary tract infection [None]
  - Quadriparesis [None]
  - Sepsis [None]

NARRATIVE: CASE EVENT DATE: 20210211
